FAERS Safety Report 25340061 (Version 2)
Quarter: 2025Q2

REPORT INFORMATION
  Report Type: Spontaneous
  Country: RU (occurrence: RU)
  Receive Date: 20250521
  Receipt Date: 20250602
  Transmission Date: 20250716
  Serious: Yes (Disabling, Other)
  Sender: ORGANON
  Company Number: RU-ORGANON-O2505RUS003132

PATIENT
  Age: 27 Year
  Sex: Female

DRUGS (1)
  1. ETONOGESTREL [Suspect]
     Active Substance: ETONOGESTREL
     Route: 059
     Dates: start: 202311

REACTIONS (1)
  - Vaginal haemorrhage [Not Recovered/Not Resolved]

NARRATIVE: CASE EVENT DATE: 20250101
